FAERS Safety Report 17286803 (Version 1)
Quarter: 2020Q1

REPORT INFORMATION
  Report Type: Spontaneous
  Country: GB (occurrence: GB)
  Receive Date: 20200119
  Receipt Date: 20200119
  Transmission Date: 20200409
  Serious: Yes (Hospitalization)
  Sender: FDA-Public Use
  Company Number: GB-BIOGEN-2020BI00827940

PATIENT
  Sex: Female

DRUGS (1)
  1. TECFIDERA [Suspect]
     Active Substance: DIMETHYL FUMARATE
     Indication: MULTIPLE SCLEROSIS
     Dosage: MAINTENANCE DOSE
     Route: 048

REACTIONS (6)
  - Multiple sclerosis [Unknown]
  - Hernia [Unknown]
  - Weight decreased [Unknown]
  - Motion sickness [Unknown]
  - Drug hypersensitivity [Unknown]
  - Multiple sclerosis relapse [Recovered/Resolved]
